FAERS Safety Report 8776038 (Version 4)
Quarter: 2013Q2

REPORT INFORMATION
  Report Type: Spontaneous
  Country: US (occurrence: US)
  Receive Date: 20120910
  Receipt Date: 20130402
  Transmission Date: 20140414
  Serious: Yes (Hospitalization)
  Sender: FDA-Public Use
  Company Number: US-B.I. PHARMACEUTICALS,INC./RIDGEFIELD-2012-BP-21395BP

PATIENT
  Age: 70 Year
  Sex: Male
  Weight: 92.99 kg

DRUGS (6)
  1. PRADAXA [Suspect]
     Indication: ANTICOAGULANT THERAPY
     Dosage: 300 MG
     Dates: start: 20111115, end: 20111222
  2. PRADAXA [Suspect]
     Indication: ATRIAL FIBRILLATION
  3. LASIX [Concomitant]
     Dosage: 40 MG
     Route: 048
  4. POTASSIUM [Concomitant]
     Dosage: 20 MEQ
  5. PLAVIX [Concomitant]
     Dosage: 25 MG
  6. CARVEDILOL [Concomitant]

REACTIONS (1)
  - Gastrointestinal haemorrhage [Unknown]
